FAERS Safety Report 7394443-4 (Version None)
Quarter: 2011Q2

REPORT INFORMATION
  Report Type: 
  Country: None (occurrence: None)
  Receive Date: 20110405
  Receipt Date: 20110331
  Transmission Date: 20111010
  Serious: No
  Sender: FDA-Public Use
  Company Number: US-PFIZER INC-2011072333

PATIENT
  Sex: Male
  Weight: 104.31 kg

DRUGS (7)
  1. VIAGRA [Suspect]
     Indication: ERECTILE DYSFUNCTION
     Dosage: 50 MG, AS NEEDED
     Route: 048
     Dates: start: 20090101
  2. FUROSEMIDE [Concomitant]
     Indication: RENAL DISORDER
     Dosage: UNK
  3. DOXEPIN [Concomitant]
     Indication: DEPRESSION
     Dosage: UNK
  4. AVAPRO [Concomitant]
     Indication: HYPERTENSION
     Dosage: UNK
  5. SIMVASTATIN [Concomitant]
     Indication: RENAL DISORDER
     Dosage: UNK
  6. AVAPRO [Concomitant]
     Indication: RENAL DISORDER
  7. SODIUM BICARBONATE [Concomitant]
     Indication: RENAL DISORDER
     Dosage: UNK

REACTIONS (1)
  - DRUG EFFECT DECREASED [None]
